FAERS Safety Report 19832724 (Version 1)
Quarter: 2021Q3

REPORT INFORMATION
  Report Type: Spontaneous
  Country: GB (occurrence: GB)
  Receive Date: 20210914
  Receipt Date: 20210914
  Transmission Date: 20211014
  Serious: Yes (Hospitalization, Other)
  Sender: FDA-Public Use
  Company Number: GB-PURDUE-USA-2021-0283873

PATIENT
  Age: 56 Year
  Sex: Female

DRUGS (2)
  1. THEOPHYLLINE (040086, 087571 RHODES) [Suspect]
     Active Substance: THEOPHYLLINE ANHYDROUS
     Indication: PRODUCT USED FOR UNKNOWN INDICATION
     Dosage: UNK
     Route: 065
  2. PHYLLOCONTIN [Suspect]
     Active Substance: AMINOPHYLLINE
     Indication: PRODUCT USED FOR UNKNOWN INDICATION
     Dosage: [225 MG, STRENGHT]
     Route: 065

REACTIONS (4)
  - Loss of consciousness [Unknown]
  - Product availability issue [Unknown]
  - Oxygen saturation decreased [Unknown]
  - Product substitution issue [Unknown]
